FAERS Safety Report 19509176 (Version 1)
Quarter: 2021Q3

REPORT INFORMATION
  Report Type: Other
  Country: US (occurrence: US)
  Receive Date: 20210709
  Receipt Date: 20210709
  Transmission Date: 20211014
  Serious: Yes (Other)
  Sender: FDA-Public Use
  Company Number: US-APOTEX-2021AP015495

PATIENT
  Age: 12 Year
  Sex: Male

DRUGS (3)
  1. GUANFACINE EXTENDED RELEASE TABLET [Suspect]
     Active Substance: GUANFACINE
     Dosage: 2 MILLIGRAM
     Route: 065
     Dates: start: 20210321, end: 20210327
  2. GUANFACINE EXTENDED RELEASE TABLET [Suspect]
     Active Substance: GUANFACINE
     Indication: ATTENTION DEFICIT HYPERACTIVITY DISORDER
     Dosage: 1 MILLIGRAM
     Route: 065
  3. GUANFACINE EXTENDED RELEASE TABLET [Suspect]
     Active Substance: GUANFACINE
     Indication: RESPIRATORY DISORDER
     Dosage: 1 MG, 2 TABLETS A NIGHT
     Route: 065
     Dates: start: 20210311, end: 20210320

REACTIONS (8)
  - Chest pain [Recovered/Resolved]
  - Depressive symptom [Recovered/Resolved]
  - Recalled product administered [Unknown]
  - Product contamination chemical [Unknown]
  - Condition aggravated [Recovered/Resolved]
  - Suicidal ideation [Recovered/Resolved]
  - Oropharyngeal pain [Recovered/Resolved]
  - Neck pain [Recovered/Resolved]
